FAERS Safety Report 24066149 (Version 5)
Quarter: 2025Q1

REPORT INFORMATION
  Report Type: Spontaneous
  Country: US (occurrence: US)
  Receive Date: 20240709
  Receipt Date: 20250120
  Transmission Date: 20250408
  Serious: Yes (Other)
  Sender: PFIZER
  Company Number: US-PFIZER INC-202400201055

PATIENT
  Age: 71 Year
  Sex: Male

DRUGS (1)
  1. CAVERJECT IMPULSE [Suspect]
     Active Substance: ALPROSTADIL

REACTIONS (5)
  - Injection site haemorrhage [Unknown]
  - Fear of injection [Unknown]
  - Device failure [Unknown]
  - Device mechanical issue [Unknown]
  - Product contamination with body fluid [Unknown]
